FAERS Safety Report 8104674-3 (Version None)
Quarter: 2012Q1

REPORT INFORMATION
  Report Type: 
  Country: None (occurrence: None)
  Receive Date: 20120201
  Receipt Date: 20120126
  Transmission Date: 20120608
  Serious: Yes (Life-Threatening, Hospitalization, Other)
  Sender: FDA-Public Use
  Company Number: JP-PFIZER INC-2011314411

PATIENT
  Age: 86 Year
  Weight: 48.2 kg

DRUGS (16)
  1. LANSOPRAZOLE [Concomitant]
  2. ALDACTONE [Concomitant]
     Dosage: 25 MG, 1X/DAY
     Route: 048
     Dates: end: 20111121
  3. ISOSORBIDE DINITRATE [Concomitant]
     Dosage: 40 MG, 1X/DAY
     Route: 003
     Dates: end: 20111121
  4. MUCOSOLVAN [Concomitant]
     Dosage: 45 MG, 1X/DAY
     Route: 048
     Dates: end: 20111121
  5. TALION [Concomitant]
     Dosage: 10 MG, 2X/DAY
     Route: 048
     Dates: start: 20111118, end: 20111121
  6. GLUCONSAN K [Concomitant]
     Dosage: 1 G, 1X/DAY
     Route: 048
     Dates: end: 20111121
  7. LYRICA [Suspect]
     Dosage: 75 MG, 2X/DAY
     Route: 048
     Dates: end: 20111121
  8. MARZULENE S [Concomitant]
     Dosage: 0.67 G, 3X/DAY
     Route: 048
     Dates: end: 20111121
  9. LASIX [Concomitant]
     Dosage: 40 MG, 1X/DAY
     Route: 048
     Dates: end: 20111121
  10. DIGOXIN [Concomitant]
     Dosage: 0.125 G, 1X/DAY
     Route: 048
     Dates: end: 20111121
  11. DEPAS [Concomitant]
     Dosage: 0.5 MG, 1X/DAY
     Route: 048
     Dates: end: 20111121
  12. SITAGLIPTIN PHOSPHATE [Concomitant]
     Dosage: 50 MG, 1X/DAY
     Route: 048
     Dates: end: 20111121
  13. LOXOPROFEN [Concomitant]
     Dosage: 50 MG, 3X/DAY
     Route: 048
     Dates: start: 20111118, end: 20111121
  14. RESPLEN [Concomitant]
     Dosage: 20 MG, 3X/DAY
     Route: 048
     Dates: start: 20111118, end: 20111121
  15. GLUCOBAY [Concomitant]
     Dosage: 100 MG, 3X/DAY
     Route: 048
     Dates: end: 20111121
  16. SITAFLOXACIN [Concomitant]
     Dosage: 50 MG, 2X/DAY
     Route: 048
     Dates: start: 20111118, end: 20111121

REACTIONS (4)
  - BLOOD UREA INCREASED [None]
  - PNEUMONIA [None]
  - BLOOD CREATINE INCREASED [None]
  - ALTERED STATE OF CONSCIOUSNESS [None]
